FAERS Safety Report 7164414-1 (Version None)
Quarter: 2010Q4

REPORT INFORMATION
  Report Type: 
  Country: None (occurrence: None)
  Receive Date: 20101215
  Receipt Date: 20101209
  Transmission Date: 20110411
  Serious: Yes (Death)
  Sender: FDA-Public Use
  Company Number: TR-ELI_LILLY_AND_COMPANY-TR201012002297

PATIENT
  Sex: Female

DRUGS (3)
  1. HUMULIN N [Suspect]
     Indication: DIABETES MELLITUS
     Dosage: 20 U, EACH MORNING
     Route: 058
     Dates: start: 20040101, end: 20101120
  2. HUMULIN N [Suspect]
     Dosage: 10 U, EACH EVENING
     Route: 058
     Dates: start: 20040101, end: 20101120
  3. HUMULIN R [Suspect]
     Indication: DIABETES MELLITUS
     Dosage: 14 U, OTHER
     Route: 058
     Dates: start: 20040101, end: 20101120

REACTIONS (1)
  - HEPATIC FAILURE [None]
